FAERS Safety Report 6340655-8 (Version None)
Quarter: 2009Q3

REPORT INFORMATION
  Report Type: 
  Country: None (occurrence: None)
  Receive Date: 20090902
  Receipt Date: 20090902
  Transmission Date: 20100115
  Serious: Yes (Other)
  Sender: FDA-Public Use
  Company Number: None

PATIENT
  Age: 51 Year
  Sex: Female
  Weight: 90.7194 kg

DRUGS (1)
  1. ARESTIN [Suspect]
     Indication: INFECTION PROPHYLAXIS
     Dosage: 1MG EVERY 3 MONTHS DENTAL  21 DAYS EVERY 3 MONTHS
     Route: 004

REACTIONS (8)
  - ANXIETY [None]
  - DEPRESSION [None]
  - DISTURBANCE IN ATTENTION [None]
  - HYPOTHYROIDISM [None]
  - IMPAIRED DRIVING ABILITY [None]
  - INSOMNIA [None]
  - PANIC ATTACK [None]
  - PSYCHOMOTOR HYPERACTIVITY [None]
